FAERS Safety Report 7137546-1 (Version None)
Quarter: 2010Q4

REPORT INFORMATION
  Report Type: 
  Country: None (occurrence: None)
  Receive Date: 20101206
  Receipt Date: 20101201
  Transmission Date: 20110411
  Serious: Yes (Other)
  Sender: FDA-Public Use
  Company Number: CH-BRISTOL-MYERS SQUIBB COMPANY-15416225

PATIENT
  Age: 30 Year
  Sex: Female
  Weight: 35 kg

DRUGS (3)
  1. CETUXIMAB [Suspect]
     Indication: GASTROOESOPHAGEAL CANCER
     Dosage: NEXT INF ON 25NOV10 STRENGTH:5MG/ML ONGOING
     Route: 042
     Dates: start: 20101014
  2. CISPLATIN [Suspect]
     Indication: GASTROOESOPHAGEAL CANCER
     Dosage: ON DAY 1 OF CYCLE
     Route: 042
  3. XELODA [Suspect]
     Indication: GASTROOESOPHAGEAL CANCER
     Dosage: ON DAY 1-15 TAB
     Route: 048

REACTIONS (3)
  - ABDOMINAL DISTENSION [None]
  - ASCITES [None]
  - HYPOPROTEINAEMIA [None]
